FAERS Safety Report 4415630-0 (Version None)
Quarter: 2004Q2

REPORT INFORMATION
  Report Type: 
  Country: None (occurrence: None)
  Receive Date: 20040630
  Receipt Date: 20040123
  Transmission Date: 20050107
  Serious: Yes (Other)
  Sender: FDA-Public Use
  Company Number: 2004005021

PATIENT
  Age: 80 Year
  Sex: Female
  Weight: 63.9572 kg

DRUGS (6)
  1. ZOLOFT [Suspect]
     Indication: DEPRESSION
     Dosage: 50 MG (DAILY), ORAL
     Route: 048
     Dates: start: 20031229, end: 20040121
  2. DIGOXIN [Concomitant]
  3. ATENOLOL [Concomitant]
  4. ISOSORBIDE (ISOSORBIDE) [Concomitant]
  5. FUROSEMIDE [Concomitant]
  6. WARFARIN SODIUM [Concomitant]

REACTIONS (3)
  - ANXIETY [None]
  - CONVULSION [None]
  - FALL [None]
